FAERS Safety Report 6813614-6 (Version None)
Quarter: 2010Q3

REPORT INFORMATION
  Report Type: 
  Country: None (occurrence: None)
  Receive Date: 20100701
  Receipt Date: 20100623
  Transmission Date: 20110219
  Serious: Yes (Other)
  Sender: FDA-Public Use
  Company Number: JP-PFIZER INC-2010078083

PATIENT
  Age: 58 Year
  Sex: Male

DRUGS (3)
  1. GABAPEN [Suspect]
     Indication: CANCER PAIN
     Dosage: 600 MG/DAY
  2. GABAPEN [Suspect]
     Dosage: 1200 MG/DAY
  3. FENTANYL [Concomitant]
     Indication: PAIN

REACTIONS (10)
  - ALLODYNIA [None]
  - BACK PAIN [None]
  - DRUG INEFFECTIVE [None]
  - FALL [None]
  - HALLUCINATION [None]
  - HYPOAESTHESIA [None]
  - METASTATIC PAIN [None]
  - MUSCULAR WEAKNESS [None]
  - NECK PAIN [None]
  - NEOPLASM PROGRESSION [None]
